FAERS Safety Report 8479053-X (Version None)
Quarter: 2012Q2

REPORT INFORMATION
  Report Type: 
  Country: None (occurrence: None)
  Receive Date: 20120629
  Receipt Date: 20120620
  Transmission Date: 20120825
  Serious: Yes (Hospitalization)
  Sender: FDA-Public Use
  Company Number: JP-EISAI INC-E7389-01987-CLI-JP

PATIENT
  Sex: Female
  Weight: 56 kg

DRUGS (43)
  1. GRANISETRON [Concomitant]
     Indication: PROPHYLAXIS
     Route: 041
  2. FLURBIPROFEN [Concomitant]
     Indication: PAIN PROPHYLAXIS
     Route: 041
  3. RABEPRAZOLE SODIUM [Concomitant]
     Indication: PROPHYLAXIS
     Route: 048
  4. AZUNOL [Concomitant]
     Indication: PROPHYLAXIS
  5. HALAVEN [Suspect]
     Route: 041
     Dates: start: 20120118, end: 20120118
  6. HALAVEN [Suspect]
     Route: 041
     Dates: start: 20111109, end: 20111109
  7. INCREMIN [Concomitant]
     Indication: PROPHYLAXIS
     Route: 048
  8. KAKKON-TO [Concomitant]
     Route: 048
  9. CONCENTRATED RED CELLS [Concomitant]
     Route: 041
  10. HERCEPTIN [Concomitant]
     Indication: BREAST CANCER RECURRENT
     Dates: start: 20111124
  11. GRAN [Concomitant]
     Route: 041
  12. HALAVEN [Suspect]
     Route: 041
     Dates: start: 20111019, end: 20111019
  13. HALAVEN [Suspect]
     Route: 041
     Dates: start: 20110921, end: 20111012
  14. RELIFEN [Concomitant]
     Route: 048
  15. PROCHLORPERAZINE [Concomitant]
     Indication: PROPHYLAXIS
     Route: 048
  16. DAITALIC [Concomitant]
     Route: 048
  17. SERENAL [Concomitant]
     Indication: PROPHYLAXIS
     Route: 048
  18. PIROLACTAN [Concomitant]
     Route: 048
  19. ELTACIN [Concomitant]
     Route: 048
  20. HALAVEN [Suspect]
     Route: 041
     Dates: start: 20120201, end: 20120208
  21. GABAPENTIN [Concomitant]
     Route: 048
  22. PACIF [Concomitant]
     Route: 048
  23. EURAX [Concomitant]
     Route: 065
  24. HALAVEN [Suspect]
     Route: 041
     Dates: start: 20120321, end: 20120321
  25. HALAVEN [Suspect]
     Route: 041
     Dates: start: 20120229, end: 20120229
  26. AMOXICILLIN [Concomitant]
     Route: 048
  27. MORPHINE [Concomitant]
     Route: 048
  28. METRONIDAZOLE [Concomitant]
     Indication: PROPHYLAXIS
  29. SOLU-CORTEF [Concomitant]
     Route: 041
  30. BESOFTEN [Concomitant]
  31. FUROSEMIDE [Concomitant]
     Route: 048
  32. HALAVEN [Suspect]
     Indication: METASTASES TO SKIN
     Route: 041
     Dates: start: 20120425, end: 20120509
  33. PERAPRIN [Concomitant]
     Indication: PROPHYLAXIS
     Route: 048
  34. ACETAMINOPHEN [Concomitant]
     Indication: PROPHYLAXIS
     Route: 048
  35. SOLU-CORTEF [Concomitant]
     Route: 041
  36. CRAVIT [Concomitant]
     Indication: PROPHYLAXIS
     Route: 048
  37. HALAVEN [Suspect]
     Indication: BREAST CANCER RECURRENT
     Route: 041
     Dates: start: 20110817, end: 20110907
  38. HALAVEN [Suspect]
     Route: 041
     Dates: start: 20111124, end: 20120111
  39. LOXOMARIN [Concomitant]
     Route: 048
  40. MAGMITT [Concomitant]
     Indication: PROPHYLAXIS
     Route: 048
  41. LEVOFLOXACIN [Concomitant]
     Route: 048
  42. FLOMOX [Concomitant]
     Indication: PROPHYLAXIS
  43. MUCOSTA [Concomitant]
     Indication: PROPHYLAXIS
     Route: 048

REACTIONS (4)
  - SEPSIS [None]
  - MALAISE [None]
  - NEUTROPENIA [None]
  - FEBRILE NEUTROPENIA [None]
